FAERS Safety Report 8562201-0 (Version None)
Quarter: 2012Q3

REPORT INFORMATION
  Report Type: 
  Country: None (occurrence: None)
  Receive Date: 20120802
  Receipt Date: 20120710
  Transmission Date: 20120928
  Serious: No
  Sender: FDA-Public Use
  Company Number: US-AMGEN-KDL318172

PATIENT
  Age: 66 Year
  Sex: Female

DRUGS (7)
  1. FOLIC ACID [Concomitant]
     Dosage: UNK
  2. ENBREL [Suspect]
     Dosage: 50 MG, QWK
     Route: 058
  3. OMEPRAZOLE [Concomitant]
     Dosage: UNK UNK, UNK
  4. ALENDRONATE SODIUM [Concomitant]
     Dosage: UNK
  5. METHOTREXATE [Concomitant]
     Dosage: 22 MG, QWK
     Dates: start: 20080301
  6. ENBREL [Suspect]
     Indication: RHEUMATOID ARTHRITIS
     Dosage: 50 MG, QWK
     Route: 058
     Dates: start: 20080929
  7. PREDNISONE [Concomitant]
     Dosage: 5 MG, UNK

REACTIONS (10)
  - BLISTER [None]
  - NASOPHARYNGITIS [None]
  - INJECTION SITE PRURITUS [None]
  - INJECTION SITE REACTION [None]
  - RHEUMATOID ARTHRITIS [None]
  - INJECTION SITE PAIN [None]
  - INJECTION SITE ERYTHEMA [None]
  - INJECTION SITE SWELLING [None]
  - INJECTION SITE INDURATION [None]
  - RASH ERYTHEMATOUS [None]
